FAERS Safety Report 4565568-3 (Version None)
Quarter: 2005Q1

REPORT INFORMATION
  Report Type: 
  Country: None (occurrence: None)
  Receive Date: 20050131
  Receipt Date: 20041008
  Transmission Date: 20050727
  Serious: Yes (Other)
  Sender: FDA-Public Use
  Company Number: JP-BRISTOL-MYERS SQUIBB COMPANY-12733614

PATIENT
  Age: 34 Year
  Sex: Male

DRUGS (2)
  1. STOCRIN CAPS [Suspect]
     Indication: HIV INFECTION
     Route: 048
     Dates: start: 20030725
  2. COMBIVIR [Suspect]
     Indication: HIV INFECTION
     Route: 048
     Dates: start: 20030725

REACTIONS (2)
  - EOSINOPHILIC PUSTULAR FOLLICULITIS [None]
  - PHARYNGITIS [None]
